FAERS Safety Report 10375768 (Version 3)
Quarter: 2015Q1

REPORT INFORMATION
  Report Type: Spontaneous
  Country: US (occurrence: US)
  Receive Date: 20140811
  Receipt Date: 20150305
  Transmission Date: 20150720
  Serious: Yes (Hospitalization)
  Sender: FDA-Public Use
  Company Number: US-BAYER-2014-117692

PATIENT
  Age: 51 Year
  Sex: Female
  Weight: 68.27 kg

DRUGS (9)
  1. VITAMIN C [Concomitant]
     Active Substance: ASCORBIC ACID
  2. AYGESTIN [Concomitant]
     Active Substance: NORETHINDRONE ACETATE
  3. ROXICET [Concomitant]
     Active Substance: ACETAMINOPHEN\OXYCODONE HYDROCHLORIDE
     Indication: PAIN
     Dosage: UNK UNK, PRN
  4. YASMIN [Suspect]
     Active Substance: DROSPIRENONE\ETHINYL ESTRADIOL
     Dosage: UNK
  5. NORETHINDRONE. [Concomitant]
     Active Substance: NORETHINDRONE
  6. DULCOLAX [Concomitant]
     Active Substance: BISACODYL OR DOCUSATE SODIUM
  7. YAZ [Suspect]
     Active Substance: DROSPIRENONE\ETHINYL ESTRADIOL
     Dosage: UNK
     Route: 048
     Dates: start: 2006, end: 20110319
  8. VITAMIN B COMPLEX [VITAMIN-B-KOMPLEX STANDARD] [Concomitant]
  9. CIPRO [Concomitant]
     Active Substance: CIPROFLOXACIN HYDROCHLORIDE

REACTIONS (6)
  - Thrombophlebitis superficial [Recovered/Resolved]
  - Pain [Recovering/Resolving]
  - Injury [Recovered/Resolved]
  - General physical health deterioration [Recovering/Resolving]
  - Deep vein thrombosis [Recovered/Resolved]
  - Pulmonary embolism [Recovering/Resolving]

NARRATIVE: CASE EVENT DATE: 20110318
